FAERS Safety Report 8398359-6 (Version None)
Quarter: 2012Q2

REPORT INFORMATION
  Report Type: 
  Country: None (occurrence: None)
  Receive Date: 20120531
  Receipt Date: 20120521
  Transmission Date: 20120825
  Serious: Yes (Other)
  Sender: FDA-Public Use
  Company Number: DE-ELI_LILLY_AND_COMPANY-DE201205007790

PATIENT
  Age: 14 Year
  Sex: Male

DRUGS (2)
  1. STRATTERA [Suspect]
     Indication: ATTENTION DEFICIT/HYPERACTIVITY DISORDER
     Dosage: 25 MG, UNK
     Route: 048
     Dates: start: 20111028, end: 20120420
  2. PIPAMPERON [Concomitant]
     Dosage: UNK
     Dates: start: 20120519

REACTIONS (3)
  - BLINDNESS [None]
  - VERTIGO [None]
  - VISION BLURRED [None]
